FAERS Safety Report 15315821 (Version 1)
Quarter: 2018Q3

REPORT INFORMATION
  Report Type: Spontaneous
  Country: US (occurrence: US)
  Receive Date: 20180824
  Receipt Date: 20180824
  Transmission Date: 20181010
  Serious: Yes (Other)
  Sender: FDA-Public Use
  Company Number: PHEH2018US034506

PATIENT
  Sex: Female

DRUGS (2)
  1. IBRANCE [Suspect]
     Active Substance: PALBOCICLIB
     Indication: BREAST CANCER
     Dosage: 125 MG, QD (FOR 21 DAYS AND 7 DAYS OFF)
     Route: 048
     Dates: start: 20180625, end: 20180716
  2. FEMARA [Suspect]
     Active Substance: LETROZOLE
     Indication: BREAST CANCER
     Dosage: QD
     Route: 048
     Dates: end: 20180716

REACTIONS (2)
  - Fatigue [Unknown]
  - Bone marrow failure [Unknown]
